FAERS Safety Report 24911688 (Version 2)
Quarter: 2025Q1

REPORT INFORMATION
  Report Type: Spontaneous
  Country: JP (occurrence: JP)
  Receive Date: 20250131
  Receipt Date: 20250307
  Transmission Date: 20250408
  Serious: Yes (Other)
  Sender: OTSUKA
  Company Number: JP-OTSUKA-2025_002350

PATIENT
  Age: 4 Year
  Sex: Female

DRUGS (2)
  1. BUSULFAN [Suspect]
     Active Substance: BUSULFAN
     Indication: Neuroblastoma
     Route: 065
  2. BUSULFAN [Suspect]
     Active Substance: BUSULFAN
     Indication: Chemotherapy

REACTIONS (2)
  - Pulmonary hypertension [Recovering/Resolving]
  - Product use in unapproved indication [Unknown]
